FAERS Safety Report 8892970 (Version 1)
Quarter: 2012Q4

REPORT INFORMATION
  Report Type: 
  Country: US (occurrence: US)
  Receive Date: 20121107
  Receipt Date: 20121107
  Transmission Date: 20130627
  Serious: No
  Sender: FDA-Public Use
  Company Number: US-AMGEN-USASP2011054331

PATIENT
  Age: 50 Year
  Sex: Female

DRUGS (8)
  1. ENBREL [Suspect]
     Indication: PRODUCT USED FOR UNKNOWN INDICATION
     Dosage: 50 mg, qwk
     Route: 058
  2. LIPITOR [Concomitant]
     Dosage: 10 mg, UNK
     Route: 048
  3. ATENOLOL [Concomitant]
     Dosage: 25 mg, UNK
     Route: 048
  4. HYDROXYCHLOROQUINE [Concomitant]
     Dosage: 200 mg, UNK
     Route: 048
  5. BUTALBITAL/APAP [Concomitant]
     Route: 048
  6. DICLOFENAC [Concomitant]
     Dosage: 75 mg, UNK
     Route: 048
  7. CRYSELLE-28 [Concomitant]
     Route: 048
  8. ACIPHEX [Concomitant]
     Dosage: 20 mg, UNK
     Route: 048

REACTIONS (2)
  - Dry skin [Unknown]
  - Pruritus [Unknown]
